FAERS Safety Report 8297686-0 (Version None)
Quarter: 2012Q2

REPORT INFORMATION
  Report Type: 
  Country: None (occurrence: None)
  Receive Date: 20120419
  Receipt Date: 20120412
  Transmission Date: 20120825
  Serious: Yes (Death, Life-Threatening, Disabling, Other)
  Sender: FDA-Public Use
  Company Number: JP-CELGENEUS-087-50794-11043084

PATIENT
  Sex: Male

DRUGS (11)
  1. FAMOTIDINE [Concomitant]
     Dosage: 40 MILLIGRAM
     Route: 048
     Dates: start: 20110105, end: 20110425
  2. ZOSYN [Concomitant]
     Dosage: 4.5 GRAM
     Route: 041
     Dates: start: 20110328, end: 20110402
  3. KYTRIL [Concomitant]
     Dosage: 3 MILLIGRAM
     Route: 065
     Dates: start: 20110331, end: 20110406
  4. VIDAZA [Suspect]
     Dosage: 75 MILLIGRAM/SQ. METER
     Route: 058
     Dates: start: 20110324, end: 20110330
  5. RECOMODULIN [Concomitant]
     Route: 065
     Dates: start: 20110414, end: 20110414
  6. ITRACONAZOLE [Concomitant]
     Dosage: 200 MILLIGRAM
     Route: 048
     Dates: start: 20110105, end: 20110425
  7. LEVOFLOXACIN [Concomitant]
     Dosage: 500 MILLIGRAM
     Route: 048
     Dates: start: 20110105, end: 20110425
  8. MAXIPIME [Concomitant]
     Dosage: 1 GRAM
     Route: 065
     Dates: start: 20110402, end: 20110404
  9. BARACLUDE [Concomitant]
     Dosage: .5 MILLIGRAM
     Route: 048
     Dates: start: 20110105, end: 20110425
  10. VIDAZA [Suspect]
     Dosage: 75 MILLIGRAM/SQ. METER
     Route: 058
     Dates: start: 20110331, end: 20110406
  11. ZOSYN [Concomitant]
     Dosage: 4.5 GRAM
     Route: 041
     Dates: start: 20110331, end: 20110406

REACTIONS (5)
  - GENERALISED OEDEMA [None]
  - RENAL FAILURE [None]
  - INFECTION [None]
  - VENOOCCLUSIVE LIVER DISEASE [None]
  - ACUTE RESPIRATORY DISTRESS SYNDROME [None]
